FAERS Safety Report 24813064 (Version 2)
Quarter: 2025Q1

REPORT INFORMATION
  Report Type: Report from Study
  Country: CO (occurrence: CO)
  Receive Date: 20250107
  Receipt Date: 20250115
  Transmission Date: 20250409
  Serious: Yes (Death)
  Sender: NOVO NORDISK
  Company Number: CO-NOVOPROD-1344559

PATIENT
  Age: 83 Year
  Sex: Female
  Weight: 72 kg

DRUGS (1)
  1. XULTOPHY 100/3.6 [Suspect]
     Active Substance: INSULIN DEGLUDEC\LIRAGLUTIDE
     Indication: Type 2 diabetes mellitus
     Route: 058
     Dates: start: 202410

REACTIONS (6)
  - Cardiac arrest [Fatal]
  - Coma [Fatal]
  - Muscular weakness [Fatal]
  - Blister [Fatal]
  - Decreased appetite [Fatal]
  - Fatigue [Fatal]

NARRATIVE: CASE EVENT DATE: 20241001
